FAERS Safety Report 15094288 (Version 2)
Quarter: 2018Q3

REPORT INFORMATION
  Report Type: Spontaneous
  Country: US (occurrence: US)
  Receive Date: 20180630
  Receipt Date: 20180803
  Transmission Date: 20181010
  Serious: No
  Sender: FDA-Public Use
  Company Number: PHEH2018US026620

PATIENT
  Sex: Male

DRUGS (1)
  1. PROMACTA [Suspect]
     Active Substance: ELTROMBOPAG OLAMINE
     Indication: THROMBOCYTOPENIA
     Dosage: 50 MG, QD
     Route: 048
     Dates: start: 20180104

REACTIONS (5)
  - Chest pain [Unknown]
  - Gingival bleeding [Unknown]
  - Gingival swelling [Unknown]
  - Hypoaesthesia [Unknown]
  - Epistaxis [Unknown]
